FAERS Safety Report 16833305 (Version 1)
Quarter: 2019Q3

REPORT INFORMATION
  Report Type: Spontaneous
  Country: IT (occurrence: IT)
  Receive Date: 20190920
  Receipt Date: 20190920
  Transmission Date: 20191005
  Serious: Yes (Hospitalization, Other)
  Sender: FDA-Public Use
  Company Number: IT-009507513-1107ITA00057

PATIENT
  Age: 61 Year
  Sex: Female

DRUGS (14)
  1. NOVO-NORM [Concomitant]
     Active Substance: REPAGLINIDE
     Dosage: 1.5 MG, QD (3 DOSAGE FORM)
     Route: 048
  2. ASPIRIN. [Concomitant]
     Active Substance: ASPIRIN
     Dosage: 100 MG, UNK
     Route: 048
  3. JANUVIA [Suspect]
     Active Substance: SITAGLIPTIN PHOSPHATE
     Indication: TYPE 2 DIABETES MELLITUS
     Dosage: 100 MG, QD (1 DOSAGE FORM)
     Route: 048
     Dates: start: 20080101, end: 20110722
  4. CARDICOR [Concomitant]
     Active Substance: BISOPROLOL
     Dosage: 2.5 MG, QD
     Route: 048
  5. SEACOR [Concomitant]
     Active Substance: OMEGA-3 FATTY ACIDS
     Dosage: UNK
  6. SIVASTIN [Suspect]
     Active Substance: SIMVASTATIN
     Indication: DYSLIPIDAEMIA
     Dosage: 40 MG, QD (1 DOSAGE FORM, QD)
     Route: 048
     Dates: start: 20110622, end: 20110719
  7. PRAVASELECT [Concomitant]
     Active Substance: PRAVASTATIN SODIUM
     Dosage: 20 MG, QD (1 DOSAGE FORM)
     Route: 048
     Dates: start: 20110101, end: 20110622
  8. PLAVIX [Concomitant]
     Active Substance: CLOPIDOGREL BISULFATE
     Dosage: 1 ENZYME UNIT (1 DOSAGE FORM)
     Route: 048
  9. DIBASE [Concomitant]
     Active Substance: CHOLECALCIFEROL
     Dosage: 25 GTT DROPS
     Route: 048
  10. NORVASC [Concomitant]
     Active Substance: AMLODIPINE BESYLATE
     Indication: HYPERTENSION
     Dosage: 5 MG, QD (1 DOSAGE FORM)
     Route: 048
  11. SANDOSTATINE [Concomitant]
     Active Substance: OCTREOTIDE ACETATE
     Dosage: 1 DOSAGE FORM
     Route: 030
  12. METFORMIN [Concomitant]
     Active Substance: METFORMIN HYDROCHLORIDE
     Dosage: 500 MILLIGRAM
     Route: 048
  13. ZYLORIC [Concomitant]
     Active Substance: ALLOPURINOL
     Dosage: 150 MG, QD
     Route: 048
  14. PANTORC [Concomitant]
     Active Substance: PANTOPRAZOLE SODIUM
     Dosage: 40 MG, QD (1 DOSAGE FORM)
     Route: 048

REACTIONS (1)
  - Rhabdomyolysis [Recovering/Resolving]

NARRATIVE: CASE EVENT DATE: 20110719
